FAERS Safety Report 17833802 (Version 2)
Quarter: 2020Q2

REPORT INFORMATION
  Report Type: Spontaneous
  Country: SG (occurrence: SG)
  Receive Date: 20200528
  Receipt Date: 20200605
  Transmission Date: 20200714
  Serious: Yes (Hospitalization, Disabling, Other)
  Sender: FDA-Public Use
  Company Number: SG-SA-2020SA133002

PATIENT

DRUGS (3)
  1. CLEXANE [Suspect]
     Active Substance: ENOXAPARIN SODIUM
     Indication: THROMBOSIS
     Dosage: UNK
  2. CLEXANE [Suspect]
     Active Substance: ENOXAPARIN SODIUM
     Indication: PROPHYLAXIS
  3. HEPARIN [Suspect]
     Active Substance: HEPARIN SODIUM
     Indication: ANTICOAGULANT THERAPY
     Dosage: UNK

REACTIONS (5)
  - Medial tibial stress syndrome [Recovered/Resolved]
  - Arterial thrombosis [Recovered/Resolved]
  - Cerebrovascular accident [Recovered/Resolved]
  - Heparin-induced thrombocytopenia [Recovered/Resolved]
  - Peripheral artery thrombosis [Recovered/Resolved]
